FAERS Safety Report 20646892 (Version 2)
Quarter: 2022Q2

REPORT INFORMATION
  Report Type: Spontaneous
  Country: CN (occurrence: CN)
  Receive Date: 20220329
  Receipt Date: 20220413
  Transmission Date: 20220721
  Serious: No
  Sender: FDA-Public Use
  Company Number: CN-LUPIN PHARMACEUTICALS INC.-2022-04344

PATIENT
  Age: 86 Year
  Sex: Male

DRUGS (11)
  1. POTASSIUM CHLORIDE [Interacting]
     Active Substance: POTASSIUM CHLORIDE
     Indication: Product used for unknown indication
     Dosage: 20 MILLILITER, QD, INJECTION WITH 250 ML OF 5% GLUCOSE INJECTION
     Route: 042
     Dates: start: 20190530
  2. POLYMYXIN B SULFATE [Interacting]
     Active Substance: POLYMYXIN B SULFATE
     Indication: Pseudomonas infection
     Dosage: 100 MG, QD, WITH 100 ML OF 0.9% SODIUM-CHLORIDE
     Route: 042
     Dates: start: 201906
  3. POLYMYXIN B SULFATE [Interacting]
     Active Substance: POLYMYXIN B SULFATE
     Dosage: WITH 100 ML OF 0.9% SODIUM-CHLORIDE
     Dates: start: 201906
  4. MAGNESIUM ASPARTATE [Interacting]
     Active Substance: MAGNESIUM ASPARTATE
     Indication: Product used for unknown indication
     Dosage: 20 MILLILITER, QD, WITH 250 ML OF 5% GLUCOSE INJECTION
     Route: 042
     Dates: start: 20190530
  5. MAGNESIUM SULFATE [Interacting]
     Active Substance: MAGNESIUM SULFATE
     Indication: Product used for unknown indication
     Dosage: 20 MILLILITER, QD, VIA INTRAVENOUS PUMP AT A RATE OF 10 ML/H
     Route: 042
     Dates: start: 201906
  6. MEROPENEM [Concomitant]
     Active Substance: MEROPENEM
     Indication: Antibiotic therapy
     Dosage: 1 GRAM, TID, WITH 100 ML OF 0.9% SODIUM-CHLORIDE
     Route: 042
     Dates: start: 20190530
  7. MEROPENEM [Concomitant]
     Active Substance: MEROPENEM
     Dosage: 1 GRAM, 6 HOURS, WITH 100 ML OF 0.9% SODIUM-CHLORIDE
     Route: 042
     Dates: start: 201906
  8. DEXTROSE [Concomitant]
     Active Substance: DEXTROSE
     Indication: Vehicle solution use
     Dosage: 250 MILLILITER
     Route: 042
     Dates: start: 20190530
  9. SODIUM CHLORIDE [Concomitant]
     Active Substance: SODIUM CHLORIDE
     Indication: Vehicle solution use
     Dosage: 100 MILLILITER, ON DAY 1 WITH MEROPENEM
     Route: 042
     Dates: start: 20190530
  10. SODIUM CHLORIDE [Concomitant]
     Active Substance: SODIUM CHLORIDE
     Dosage: 30 MILLILITER, ON DAY 6 VIA IV PUMP WITH MAGNESIUM SULFATE
     Route: 042
     Dates: start: 201906
  11. SODIUM CHLORIDE [Concomitant]
     Active Substance: SODIUM CHLORIDE
     Dosage: 100 MILLILITER, ON DAY 6 WITH POLYMIXIN-B
     Route: 042
     Dates: start: 201906

REACTIONS (2)
  - Somnolence [Recovered/Resolved]
  - Drug interaction [Unknown]

NARRATIVE: CASE EVENT DATE: 20190601
